FAERS Safety Report 18742385 (Version 1)
Quarter: 2021Q1

REPORT INFORMATION
  Report Type: Spontaneous
  Country: US (occurrence: US)
  Receive Date: 20210114
  Receipt Date: 20210114
  Transmission Date: 20210419
  Serious: Yes (Other)
  Sender: FDA-Public Use
  Company Number: US-SA-2021SA008953

PATIENT
  Age: 72 Year
  Sex: Male

DRUGS (3)
  1. CLOPIDOGREL BISULFATE. [Suspect]
     Active Substance: CLOPIDOGREL BISULFATE
     Route: 048
  2. WARFARIN [Concomitant]
     Active Substance: WARFARIN
     Indication: CEREBROVASCULAR ACCIDENT
     Route: 065
  3. ASPIRINE [Suspect]
     Active Substance: ASPIRIN
     Route: 065

REACTIONS (2)
  - Cerebrovascular accident [Unknown]
  - Hypertension [Unknown]

NARRATIVE: CASE EVENT DATE: 20110123
